FAERS Safety Report 18296817 (Version 1)
Quarter: 2020Q3

REPORT INFORMATION
  Report Type: Spontaneous
  Country: FR (occurrence: FR)
  Receive Date: 20200922
  Receipt Date: 20200922
  Transmission Date: 20201103
  Serious: Yes (Hospitalization)
  Sender: FDA-Public Use
  Company Number: FR-PFIZER INC-2020363902

PATIENT
  Age: 67 Year
  Sex: Female
  Weight: 63 kg

DRUGS (1)
  1. SUTENT [Suspect]
     Active Substance: SUNITINIB MALATE
     Indication: CLEAR CELL RENAL CELL CARCINOMA
     Dosage: UNK
     Route: 048
     Dates: start: 2019, end: 201904

REACTIONS (7)
  - Hemiparaesthesia [Recovered/Resolved]
  - Decreased appetite [Recovered/Resolved]
  - Visual impairment [Recovered/Resolved]
  - Hypertension [Recovered/Resolved]
  - Hypertensive encephalopathy [Recovered/Resolved]
  - Liver function test abnormal [Recovered/Resolved]
  - Dysarthria [Recovered/Resolved]

NARRATIVE: CASE EVENT DATE: 2019
